FAERS Safety Report 6986502-2 (Version None)
Quarter: 2010Q3

REPORT INFORMATION
  Report Type: 
  Country: None (occurrence: None)
  Receive Date: 20100915
  Receipt Date: 20090812
  Transmission Date: 20110219
  Serious: No
  Sender: FDA-Public Use
  Company Number: US-WYE-H10088809

PATIENT
  Sex: Female
  Weight: 59.47 kg

DRUGS (1)
  1. PRISTIQ [Suspect]
     Indication: MAJOR DEPRESSION
     Dosage: UNKNOWN
     Route: 048

REACTIONS (6)
  - DIZZINESS [None]
  - FEELING JITTERY [None]
  - MUSCLE TIGHTNESS [None]
  - NAUSEA [None]
  - VERTIGO [None]
  - WEIGHT INCREASED [None]
